FAERS Safety Report 22218683 (Version 1)
Quarter: 2023Q2

REPORT INFORMATION
  Report Type: Spontaneous
  Country: US (occurrence: None)
  Receive Date: 20230417
  Receipt Date: 20230417
  Transmission Date: 20230722
  Serious: Yes (Hospitalization)
  Sender: FDA-Public Use
  Company Number: 2023A088278

PATIENT
  Age: 806 Month
  Sex: Male

DRUGS (1)
  1. SYMBICORT [Suspect]
     Active Substance: BUDESONIDE\FORMOTEROL FUMARATE DIHYDRATE
     Indication: Emphysema
     Dosage: 160/4.5 MCG, 120 INHALATIONS, INHALER, 2 PUFFS 2 TIMES A DAY, FOR 5-6 YEARS
     Route: 055

REACTIONS (1)
  - Cardiac valve disease [Unknown]

NARRATIVE: CASE EVENT DATE: 20220401
